FAERS Safety Report 17807942 (Version 3)
Quarter: 2020Q3

REPORT INFORMATION
  Report Type: Spontaneous
  Country: US (occurrence: US)
  Receive Date: 20200520
  Receipt Date: 20200730
  Transmission Date: 20201102
  Serious: No
  Sender: FDA-Public Use
  Company Number: US-BRISTOL-MYERS SQUIBB COMPANY-BMS-2020-039820

PATIENT
  Sex: Male
  Weight: 112 kg

DRUGS (3)
  1. YERVOY [Suspect]
     Active Substance: IPILIMUMAB
     Indication: LUNG CARCINOMA CELL TYPE UNSPECIFIED STAGE IV
     Dosage: 240 MILLIGRAM, Q2WK
     Route: 042
     Dates: start: 2019
  2. OPDIVO [Suspect]
     Active Substance: NIVOLUMAB
     Dosage: 480 MILLIGRAM, QMO
     Route: 065
     Dates: start: 2019
  3. OPDIVO [Suspect]
     Active Substance: NIVOLUMAB
     Indication: LUNG NEOPLASM MALIGNANT
     Dosage: 240 MILLIGRAM, Q2WK
     Route: 065
     Dates: start: 2019

REACTIONS (6)
  - Feeling abnormal [Unknown]
  - Nausea [Recovering/Resolving]
  - Dizziness [Unknown]
  - Fatigue [Unknown]
  - Cough [Unknown]
  - Glycosylated haemoglobin increased [Unknown]
